FAERS Safety Report 23887049 (Version 2)
Quarter: 2024Q2

REPORT INFORMATION
  Report Type: Spontaneous
  Country: DE (occurrence: DE)
  Receive Date: 20240523
  Receipt Date: 20240620
  Transmission Date: 20240717
  Serious: Yes (Hospitalization)
  Sender: FDA-Public Use
  Company Number: DE-ALKEM LABORATORIES LIMITED-DE-ALKEM-2024-10124

PATIENT
  Age: 56 Year
  Sex: Female
  Weight: 82 kg

DRUGS (5)
  1. FINGOLIMOD [Suspect]
     Active Substance: FINGOLIMOD
     Indication: Relapsing multiple sclerosis
     Dosage: UNK
     Route: 048
     Dates: start: 20191202, end: 20231128
  2. AMLODIPINE [Concomitant]
     Active Substance: AMLODIPINE BESYLATE
     Indication: Hypertension
     Dosage: 5 MILLIGRAM, (EVERY 2 DAY)
     Route: 065
  3. ESCITALOPRAM [Concomitant]
     Active Substance: ESCITALOPRAM OXALATE
     Indication: Fatigue
     Dosage: 10 MILLIGRAM, QD (EVERY 1 DAY)
     Route: 065
     Dates: start: 20220725
  4. IBUPROFEN [Concomitant]
     Active Substance: IBUPROFEN
     Indication: Cervicobrachial syndrome
     Dosage: 600 MILLIGRAM, QD ( EVERY 1 DAY)
     Route: 065
     Dates: start: 20201210
  5. RAMIPRIL [Concomitant]
     Active Substance: RAMIPRIL
     Indication: Hypertension
     Dosage: 5 MILLIGRAM, QD (EVERY 1 DAY)
     Route: 065

REACTIONS (7)
  - Intervertebral disc protrusion [Recovered/Resolved]
  - Hypertension [Not Recovered/Not Resolved]
  - Aspartate aminotransferase increased [Recovering/Resolving]
  - Gamma-glutamyltransferase increased [Recovering/Resolving]
  - Gamma-glutamyltransferase increased [Not Recovered/Not Resolved]
  - Alanine aminotransferase increased [Recovering/Resolving]
  - Alanine aminotransferase increased [Not Recovered/Not Resolved]

NARRATIVE: CASE EVENT DATE: 20230822
